FAERS Safety Report 8403455-0 (Version None)
Quarter: 2012Q2

REPORT INFORMATION
  Report Type: 
  Country: None (occurrence: None)
  Receive Date: 20120601
  Receipt Date: 20120503
  Transmission Date: 20120825
  Serious: Yes (Other)
  Sender: FDA-Public Use
  Company Number: GB-ROCHE-1071695

PATIENT
  Sex: Male
  Weight: 83 kg

DRUGS (6)
  1. MOMETASONE FUROATE [Concomitant]
  2. SYMBICORT [Concomitant]
     Dosage: 200/6 UG
  3. ALBUTEROL [Concomitant]
  4. MONTELUKAST [Concomitant]
  5. XOLAIR [Suspect]
     Indication: ASTHMA
     Route: 058
     Dates: start: 20111201
  6. CETIRIZINE [Concomitant]

REACTIONS (1)
  - MUSCULOSKELETAL CHEST PAIN [None]
